FAERS Safety Report 5304637-7 (Version None)
Quarter: 2007Q2

REPORT INFORMATION
  Report Type: 
  Country: None (occurrence: None)
  Receive Date: 20070423
  Receipt Date: 20070413
  Transmission Date: 20071010
  Serious: Yes (Other)
  Sender: FDA-Public Use
  Company Number: 200700598

PATIENT
  Age: 45 Year
  Sex: Female

DRUGS (2)
  1. TAGAMET [Suspect]
     Indication: PROPHYLAXIS
  2. FERO-GRADUMET [Concomitant]

REACTIONS (4)
  - ASTHMA [None]
  - COUGH [None]
  - DYSPNOEA [None]
  - PALPITATIONS [None]
